FAERS Safety Report 6013301-0 (Version None)
Quarter: 2008Q4

REPORT INFORMATION
  Report Type: 
  Country: None (occurrence: None)
  Receive Date: 20081216
  Receipt Date: 20071026
  Transmission Date: 20090506
  Serious: Yes (Other)
  Sender: FDA-Public Use
  Company Number: US-WYE-H00622107

PATIENT
  Age: 28 Year
  Sex: Female

DRUGS (3)
  1. EFFEXOR XR [Suspect]
     Indication: DEPRESSION
     Dosage: 150 MG 1X PER 1 DAY, ORAL
     Route: 048
  2. REMERON [Concomitant]
  3. TRICYCLEN (ETHINYLESTRADIOL/NORGESTIMATE) [Concomitant]

REACTIONS (1)
  - URINARY RETENTION [None]
